FAERS Safety Report 9203459 (Version 2)
Quarter: 2014Q1

REPORT INFORMATION
  Report Type: Spontaneous
  Country: US (occurrence: US)
  Receive Date: 20130402
  Receipt Date: 20140113
  Transmission Date: 20141002
  Serious: No
  Sender: FDA-Public Use
  Company Number: US-PFIZER INC-2013102843

PATIENT
  Age: 47 Year
  Sex: Male

DRUGS (12)
  1. LYRICA [Suspect]
     Indication: NEURALGIA
     Dosage: 300 MG, 2X/DAY ( 1 AM, 1PM)
  2. LIPITOR [Suspect]
     Dosage: UNK
  3. APIDRA [Concomitant]
     Indication: DIABETES MELLITUS MANAGEMENT
     Dosage: UNK, (SIZE: U-100) USED IN INSULIN PUMP
  4. ASPIRIN [Concomitant]
     Indication: CARDIAC DISORDER
     Dosage: 81 MG, 1X/DAILY (1 PM)
  5. CYMBALTA [Concomitant]
     Indication: DEPRESSION
     Dosage: 60 MG, 2 DAILY (2 AM)
  6. DHEA [Concomitant]
     Indication: IMMUNE SYSTEM DISORDER
     Dosage: 25 MG, 1 DAILY (1 AM)
  7. FOLIC ACID [Concomitant]
     Indication: NEURALGIA
     Dosage: 1 MG, 1X/DAY (1 AM)
  8. ATORVASTATIN [Concomitant]
     Indication: BLOOD CHOLESTEROL
     Dosage: 40 MG, 1X/DAY (1 AM)
  9. RAMIPRIL [Concomitant]
     Indication: RENAL DISORDER
     Dosage: 5 MG, 1X/DAILY (1 AM)
  10. VITAMIN D3 [Concomitant]
     Indication: HYPOVITAMINOSIS
     Dosage: 2000 IU, 1X/DAY (1 AM)
  11. SILVADENE [Concomitant]
     Indication: DECUBITUS ULCER
     Dosage: UNK, 2X/DAY (1AM) (1PM)
  12. ALEVE [Concomitant]
     Indication: PAIN
     Dosage: 220 MG, AS NEEDED

REACTIONS (3)
  - Malaise [Unknown]
  - Nasopharyngitis [Unknown]
  - Influenza [Unknown]
